FAERS Safety Report 18678189 (Version 8)
Quarter: 2024Q2

REPORT INFORMATION
  Report Type: Spontaneous
  Country: US (occurrence: US)
  Receive Date: 20201229
  Receipt Date: 20240425
  Transmission Date: 20240716
  Serious: Yes (Other)
  Sender: FDA-Public Use
  Company Number: US-PFIZER INC-2020510302

PATIENT
  Age: 86 Year
  Sex: Male
  Weight: 79.38 kg

DRUGS (6)
  1. VYNDAMAX [Suspect]
     Active Substance: TAFAMIDIS
     Indication: Cardiac amyloidosis
     Dosage: 61 MG, 1X/DAY (ONCE A DAY)
     Route: 048
     Dates: start: 20191008, end: 20230122
  2. VYNDAMAX [Suspect]
     Active Substance: TAFAMIDIS
     Indication: Amyloidosis
     Dosage: 61 MG PER DAY
     Dates: start: 2021
  3. VYNDAMAX [Suspect]
     Active Substance: TAFAMIDIS
     Indication: Osteomyelitis
  4. EPLERENONE [Concomitant]
     Active Substance: EPLERENONE
     Dosage: 50 MG
     Dates: start: 2021
  5. JARDIANCE [Concomitant]
     Active Substance: EMPAGLIFLOZIN
     Indication: Blood pressure abnormal
     Dosage: 10 MG
  6. TORSEMIDE [Concomitant]
     Active Substance: TORSEMIDE
     Indication: Fluid retention
     Dosage: 100 MG

REACTIONS (10)
  - Cardiac failure acute [Unknown]
  - Acute kidney injury [Unknown]
  - Hypovolaemia [Recovered/Resolved]
  - Dizziness [Recovered/Resolved]
  - Dyspnoea [Not Recovered/Not Resolved]
  - Hypervolaemia [Unknown]
  - Abdominal distension [Recovering/Resolving]
  - Pain [Unknown]
  - Alopecia [Unknown]
  - Anxiety [Recovering/Resolving]

NARRATIVE: CASE EVENT DATE: 20201001
